FAERS Safety Report 19724135 (Version 1)
Quarter: 2021Q3

REPORT INFORMATION
  Report Type: Report from Study
  Country: ZA (occurrence: ZA)
  Receive Date: 20210820
  Receipt Date: 20210820
  Transmission Date: 20211014
  Serious: Yes (Death)
  Sender: FDA-Public Use
  Company Number: ZA-ASTRAZENECA-2021A688595

PATIENT
  Sex: Female

DRUGS (2)
  1. LISORETIC [Concomitant]
     Active Substance: HYDROCHLOROTHIAZIDE\LISINOPRIL
     Dosage: 20.0MG UNKNOWN
     Route: 065
  2. SYMBICORD [Suspect]
     Active Substance: BUDESONIDE\FORMOTEROL
     Dosage: 160.0UG/INHAL UNKNOWN
     Route: 055

REACTIONS (1)
  - Death [Fatal]
